FAERS Safety Report 5564021-8 (Version None)
Quarter: 2007Q4

REPORT INFORMATION
  Report Type: 
  Country: None (occurrence: None)
  Receive Date: 20071217
  Receipt Date: 20071205
  Transmission Date: 20080405
  Serious: Yes (Death, Hospitalization, Disabling, Other)
  Sender: FDA-Public Use
  Company Number: AU-PFIZER INC-2007076209

PATIENT
  Sex: Male
  Weight: 65 kg

DRUGS (1)
  1. SUTENT [Suspect]
     Indication: METASTATIC RENAL CELL CARCINOMA
     Route: 048
     Dates: start: 20061101, end: 20071016

REACTIONS (17)
  - ASCITES [None]
  - AUTOIMMUNE THYROIDITIS [None]
  - CONVULSION [None]
  - DEPRESSED LEVEL OF CONSCIOUSNESS [None]
  - DISEASE PROGRESSION [None]
  - ENCEPHALOPATHY [None]
  - FATIGUE [None]
  - GENERAL PHYSICAL HEALTH DETERIORATION [None]
  - GRAND MAL CONVULSION [None]
  - HYPERCALCAEMIA [None]
  - HYPOTENSION [None]
  - METASTATIC RENAL CELL CARCINOMA [None]
  - MOUTH ULCERATION [None]
  - NAUSEA [None]
  - PERONEAL NERVE PALSY [None]
  - SEPSIS [None]
  - VENTRICULAR TACHYCARDIA [None]
